FAERS Safety Report 9194789 (Version 1)
Quarter: 2013Q1

REPORT INFORMATION
  Report Type: Spontaneous
  Country: US (occurrence: US)
  Receive Date: 20130328
  Receipt Date: 20130328
  Transmission Date: 20140127
  Serious: No
  Sender: FDA-Public Use
  Company Number: US-ALLERGAN-1208724US

PATIENT
  Age: 58 Year
  Sex: Female

DRUGS (4)
  1. LATISSE 0.03% [Suspect]
     Indication: GROWTH OF EYELASHES
     Dosage: 2 GTT, QHS, A FEW YEARS
     Route: 061
  2. ROHTO EYE DROPS [Concomitant]
     Indication: PRODUCT USED FOR UNKNOWN INDICATION
     Dosage: UNK
     Route: 047
  3. ANTIDEPRESSANT (UNSPECIFIED) [Concomitant]
     Indication: DEPRESSION
  4. ANTIANXIETY (UNSPECIFIED) [Concomitant]
     Indication: DEPRESSION
     Dosage: UNK

REACTIONS (1)
  - Skin hyperpigmentation [Recovered/Resolved]
